FAERS Safety Report 9794322 (Version 2)
Quarter: 2014Q1

REPORT INFORMATION
  Report Type: Spontaneous
  Country: FR (occurrence: FR)
  Receive Date: 20140102
  Receipt Date: 20140326
  Transmission Date: 20141002
  Serious: Yes (Life-Threatening, Hospitalization)
  Sender: FDA-Public Use
  Company Number: FR-PFIZER INC-2013374803

PATIENT
  Age: 80 Year
  Sex: Female

DRUGS (3)
  1. CORDARONE [Suspect]
     Dosage: UNK
     Route: 048
     Dates: start: 201311, end: 201401
  2. KARDEGIC [Interacting]
     Dosage: 75 MG, DAILY
     Route: 048
     Dates: end: 20131216
  3. PRADAXA [Interacting]
     Dosage: UNK
     Route: 048
     Dates: start: 201309, end: 20131216

REACTIONS (5)
  - Fall [Unknown]
  - Drug interaction [Recovering/Resolving]
  - Intracranial haematoma [Recovering/Resolving]
  - Subarachnoid haemorrhage [Recovering/Resolving]
  - Skull fracture [Unknown]
